FAERS Safety Report 24014361 (Version 1)
Quarter: 2024Q2

REPORT INFORMATION
  Report Type: Spontaneous
  Country: US (occurrence: None)
  Receive Date: 20240626
  Receipt Date: 20240626
  Transmission Date: 20240716
  Serious: Yes (Death, Hospitalization)
  Sender: FDA-Public Use
  Company Number: US-Unichem Pharmaceuticals (USA) Inc-UCM202406-000785

PATIENT
  Age: 61 Year
  Sex: Female

DRUGS (4)
  1. METFORMIN HYDROCHLORIDE [Suspect]
     Active Substance: METFORMIN HYDROCHLORIDE
     Indication: Product used for unknown indication
     Dosage: UNKNOWN
  2. TYLENOL [Suspect]
     Active Substance: ACETAMINOPHEN
     Indication: Sciatica
     Dosage: UNKNOWN
  3. KETAMINE [Suspect]
     Active Substance: KETAMINE
     Indication: Pain
     Dosage: UNKNOWN
     Dates: start: 20221021
  4. IBUPROFEN [Concomitant]
     Active Substance: IBUPROFEN
     Indication: Sciatica
     Dosage: UNKNOWN

REACTIONS (6)
  - Brain injury [Fatal]
  - Cardiac arrest [Fatal]
  - Brain death [Fatal]
  - Toxicity to various agents [Fatal]
  - Hypoglycaemia [Fatal]
  - Metabolic acidosis [Fatal]
